FAERS Safety Report 7624072-6 (Version None)
Quarter: 2011Q3

REPORT INFORMATION
  Report Type: 
  Country: None (occurrence: None)
  Receive Date: 20110720
  Receipt Date: 20110712
  Transmission Date: 20111222
  Serious: Yes (Other)
  Sender: FDA-Public Use
  Company Number: PHHY2011AU63779

PATIENT
  Age: 6 Year
  Sex: Male

DRUGS (2)
  1. RITALIN [Suspect]
     Dosage: 5 MG, BID
  2. INSULIN [Concomitant]
     Dosage: UNK UKN, UNK

REACTIONS (2)
  - BLOOD GLUCOSE INCREASED [None]
  - COUGH [None]
